FAERS Safety Report 9757332 (Version 1)
Quarter: 2013Q4

REPORT INFORMATION
  Report Type: Spontaneous
  Country: US (occurrence: US)
  Receive Date: 20131214
  Receipt Date: 20131214
  Transmission Date: 20140711
  Serious: No
  Sender: FDA-Public Use
  Company Number: US-009507513-1311USA009902

PATIENT
  Age: 64 Year
  Sex: Male

DRUGS (4)
  1. CARBIDOPA (+) LEVODOPA [Suspect]
     Indication: PARKINSON^S DISEASE
     Dosage: 1.5 DF, QID
     Route: 048
  2. CARBIDOPA (+) LEVODOPA [Suspect]
     Indication: PARKINSON^S DISEASE
     Dosage: UNK, Q5D
     Route: 048
  3. CARBIDOPA (+) LEVODOPA [Suspect]
     Indication: PARKINSON^S DISEASE
     Dosage: 125 MG, UNK
     Route: 048
  4. ENTACAPONE [Concomitant]
     Indication: PARKINSON^S DISEASE
     Dosage: 200 MG, TID

REACTIONS (2)
  - Affective disorder [Recovered/Resolved]
  - Dyskinesia [Recovered/Resolved]
